FAERS Safety Report 22928172 (Version 3)
Quarter: 2024Q3

REPORT INFORMATION
  Report Type: Spontaneous
  Country: DE (occurrence: DE)
  Receive Date: 20230911
  Receipt Date: 20240711
  Transmission Date: 20241016
  Serious: Yes (Other)
  Sender: AUROBINDO
  Company Number: DE-OTSUKA-2023_021259

PATIENT
  Sex: Male

DRUGS (2)
  1. VENLAFAXINE [Suspect]
     Active Substance: VENLAFAXINE HYDROCHLORIDE
     Indication: Product used for unknown indication
     Dosage: UNK
     Route: 065
     Dates: start: 2015
  2. ABILIFY [Suspect]
     Active Substance: ARIPIPRAZOLE
     Indication: Product used for unknown indication
     Dosage: UNK
     Route: 065

REACTIONS (9)
  - Tardive dyskinesia [Not Recovered/Not Resolved]
  - Brain injury [Not Recovered/Not Resolved]
  - Disability [Unknown]
  - Seizure [Unknown]
  - Sick leave [Unknown]
  - Overdose [Unknown]
  - Illness [Unknown]
  - Impaired quality of life [Unknown]
  - Psychotic disorder [Unknown]
